FAERS Safety Report 6525023-8 (Version None)
Quarter: 2010Q1

REPORT INFORMATION
  Report Type: 
  Country: None (occurrence: None)
  Receive Date: 20100104
  Receipt Date: 20091221
  Transmission Date: 20100710
  Serious: Yes (Other)
  Sender: FDA-Public Use
  Company Number: US-PFIZER INC-2009313593

PATIENT

DRUGS (1)
  1. GEODON [Suspect]
     Dosage: 10 MG, UNK
     Route: 042

REACTIONS (3)
  - ACUTE CORONARY SYNDROME [None]
  - INCORRECT ROUTE OF DRUG ADMINISTRATION [None]
  - TACHYCARDIA [None]
